FAERS Safety Report 8099711 (Version 2)
Quarter: 2013Q3

REPORT INFORMATION
  Report Type: Report from Study
  Country: DE (occurrence: DE)
  Receive Date: 20110818
  Receipt Date: 20130816
  Transmission Date: 20140515
  Serious: Yes (Life-Threatening, Hospitalization, Disabling, Other)
  Sender: FDA-Public Use
  Company Number: DE-ROCHE-796962

PATIENT
  Age: 57 Year
  Sex: Male
  Weight: 87.5 kg

DRUGS (6)
  1. METHOXY POLYETHYLENE GLYCOL-EPOETIN BETA [Suspect]
     Indication: NEPHROGENIC ANAEMIA
     Dosage: LAST DOSE PRIOR TO SAE WAS ON 13 JUNE 2011
     Route: 042
  2. ASS [Concomitant]
     Route: 065
  3. PROCORALAN [Concomitant]
     Route: 065
  4. ACTOS [Concomitant]
     Route: 065
  5. RENACET [Concomitant]
     Route: 065
  6. MIMPARA [Concomitant]
     Route: 065

REACTIONS (2)
  - Ligament sprain [Unknown]
  - Ankle fracture [Unknown]
